FAERS Safety Report 13711155 (Version 1)
Quarter: 2017Q3

REPORT INFORMATION
  Report Type: Spontaneous
  Country: US (occurrence: US)
  Receive Date: 20170703
  Receipt Date: 20170703
  Transmission Date: 20171127
  Serious: No
  Sender: FDA-Public Use
  Company Number: None

PATIENT
  Age: 85 Year
  Sex: Female
  Weight: 93.98 kg

DRUGS (9)
  1. LOW DOSE ASPIRIN [Concomitant]
     Active Substance: ASPIRIN
  2. KETOROLAC [Concomitant]
     Active Substance: KETOROLAC\KETOROLAC TROMETHAMINE
  3. PROTONIX [Concomitant]
     Active Substance: PANTOPRAZOLE SODIUM
  4. XANAX [Concomitant]
     Active Substance: ALPRAZOLAM
  5. FENTENAL [Concomitant]
  6. POTASIUM [Concomitant]
  7. NORCO [Concomitant]
     Active Substance: ACETAMINOPHEN\HYDROCODONE BITARTRATE
  8. PROCHLORPERAZINE. [Concomitant]
     Active Substance: PROCHLORPERAZINE
  9. AZITHROMYCIN 250MG DOSE PACK PFIFZER [Suspect]
     Active Substance: AZITHROMYCIN DIHYDRATE
     Indication: INFECTION
     Dosage: 2 PILLS DAY 1-/EVERY DAY MOUTH
     Route: 048
     Dates: start: 20170615, end: 20170618

REACTIONS (7)
  - Ear pain [None]
  - Gingival swelling [None]
  - Muscular weakness [None]
  - Diarrhoea [None]
  - Nausea [None]
  - Lip swelling [None]
  - Lymph node pain [None]

NARRATIVE: CASE EVENT DATE: 20170615
